FAERS Safety Report 9724932 (Version 2)
Quarter: 2013Q4

REPORT INFORMATION
  Report Type: Spontaneous
  Country: US (occurrence: US)
  Receive Date: 20131202
  Receipt Date: 20131209
  Transmission Date: 20140711
  Serious: No
  Sender: FDA-Public Use
  Company Number: US-GILEAD-2013-0088464

PATIENT
  Age: 62 Year
  Sex: Female
  Weight: 100.68 kg

DRUGS (1)
  1. ATRIPLA [Suspect]
     Indication: HIV INFECTION
     Dosage: 1100 MG, UNK
     Dates: start: 201211

REACTIONS (1)
  - Nightmare [Recovering/Resolving]
